FAERS Safety Report 5811075-7 (Version None)
Quarter: 2008Q3

REPORT INFORMATION
  Report Type: 
  Country: None (occurrence: None)
  Receive Date: 20080710
  Receipt Date: 20080625
  Transmission Date: 20090109
  Serious: Yes (Other)
  Sender: FDA-Public Use
  Company Number: 2008S1007857

PATIENT
  Age: 69 Year
  Sex: Female

DRUGS (8)
  1. ENDEP [Suspect]
     Indication: ANXIETY
     Dosage: 50 MG; AT BEDTIME; ORAL
     Route: 048
     Dates: start: 20070101, end: 20080514
  2. PROTOS(CON.) [Concomitant]
  3. BRUFEN /00109201/ (CON.) [Concomitant]
  4. RANI (CON.) [Concomitant]
  5. ARATAC (CON.) [Concomitant]
  6. AVAPRO (CON.) [Concomitant]
  7. WARFARIN (CON.) [Concomitant]
  8. ZOCOR (CON.) [Concomitant]

REACTIONS (6)
  - DRY MOUTH [None]
  - DYSGEUSIA [None]
  - HALLUCINATION [None]
  - HYPERHIDROSIS [None]
  - ILLUSION [None]
  - LIP DRY [None]
